FAERS Safety Report 19472407 (Version 5)
Quarter: 2021Q3

REPORT INFORMATION
  Report Type: Report from Study
  Country: US (occurrence: US)
  Receive Date: 20210629
  Receipt Date: 20210907
  Transmission Date: 20211014
  Serious: Yes (Hospitalization)
  Sender: FDA-Public Use
  Company Number: US-PFIZER INC-2021778760

PATIENT
  Age: 45 Year
  Sex: Female
  Weight: 87.5 kg

DRUGS (5)
  1. KP?868. [Suspect]
     Active Substance: KP-868
     Dosage: 50 MG, 1X/DAY
     Route: 048
  2. PALBOCICLIB [Suspect]
     Active Substance: PALBOCICLIB
     Indication: HORMONE RECEPTOR NEGATIVE HER2 POSITIVE BREAST CANCER
     Dosage: 125 MG, 1X/DAY
     Route: 048
     Dates: start: 20210331, end: 20210427
  3. KP?868. [Suspect]
     Active Substance: KP-868
     Indication: HORMONE RECEPTOR NEGATIVE HER2 POSITIVE BREAST CANCER
     Dosage: 50 MG, 1X/DAY
     Route: 048
     Dates: start: 20210331
  4. PALBOCICLIB [Suspect]
     Active Substance: PALBOCICLIB
     Dosage: 100 MG, 1X/DAY
     Route: 048
     Dates: start: 20210512, end: 20210513
  5. KP?868. [Suspect]
     Active Substance: KP-868
     Dosage: 50 MG, 1X/DAY
     Route: 048
     Dates: end: 20210513

REACTIONS (1)
  - Embolism [Recovered/Resolved]

NARRATIVE: CASE EVENT DATE: 20210519
